FAERS Safety Report 12488204 (Version 2)
Quarter: 2016Q3

REPORT INFORMATION
  Report Type: Report from Study
  Country: DE (occurrence: DE)
  Receive Date: 20160622
  Receipt Date: 20160704
  Transmission Date: 20161109
  Serious: Yes (Life-Threatening, Hospitalization, Other)
  Sender: FDA-Public Use
  Company Number: DE-ABBVIE-16K-062-1654018-00

PATIENT
  Age: 23 Year
  Sex: Male
  Weight: 64 kg

DRUGS (1)
  1. HUMIRA [Suspect]
     Active Substance: ADALIMUMAB
     Indication: SPONDYLITIS
     Route: 058
     Dates: start: 20150203, end: 20160303

REACTIONS (9)
  - Volvulus of small bowel [Unknown]
  - Haemorrhagic ascites [Unknown]
  - Intestinal ischaemia [Unknown]
  - Gastrointestinal neoplasm [Unknown]
  - Back pain [Unknown]
  - Colon cancer [Not Recovered/Not Resolved]
  - Small intestine gangrene [Unknown]
  - Metastases to peritoneum [Not Recovered/Not Resolved]
  - Spinal disorder [Unknown]

NARRATIVE: CASE EVENT DATE: 20160201
